FAERS Safety Report 12961525 (Version 2)
Quarter: 2016Q4

REPORT INFORMATION
  Report Type: Report from Study
  Country: US (occurrence: US)
  Receive Date: 20161121
  Receipt Date: 20161215
  Transmission Date: 20170207
  Serious: Yes (Hospitalization, Other)
  Sender: FDA-Public Use
  Company Number: US-ARIAD-2016US006800

PATIENT
  Sex: Male
  Weight: 44 kg

DRUGS (3)
  1. ICLUSIG [Suspect]
     Active Substance: PONATINIB
     Indication: ACUTE LYMPHOCYTIC LEUKAEMIA RECURRENT
     Dosage: 15 MG, QD
     Route: 048
     Dates: start: 20160810
  2. ICLUSIG [Suspect]
     Active Substance: PONATINIB
     Dosage: 15 MG, QD
     Route: 048
  3. ICLUSIG [Suspect]
     Active Substance: PONATINIB
     Dosage: 15 MG, QD
     Route: 048

REACTIONS (10)
  - Device related infection [Unknown]
  - Pyrexia [Recovered/Resolved]
  - Bone marrow transplant [Unknown]
  - Chemical eye injury [Recovered/Resolved]
  - Escherichia test positive [Unknown]
  - Acute lymphocytic leukaemia recurrent [Unknown]
  - Chemotherapy [Not Recovered/Not Resolved]
  - Adjustment disorder [Unknown]
  - Alopecia [Unknown]
  - Off label use [Not Recovered/Not Resolved]
